FAERS Safety Report 6663237-7 (Version None)
Quarter: 2010Q2

REPORT INFORMATION
  Report Type: 
  Country: None (occurrence: None)
  Receive Date: 20100401
  Receipt Date: 20100326
  Transmission Date: 20101027
  Serious: Yes (Death)
  Sender: FDA-Public Use
  Company Number: PHHY2009CA25594

PATIENT
  Sex: Female

DRUGS (2)
  1. ACLASTA [Suspect]
     Dosage: UNK
     Dates: start: 20090619
  2. VANCOMYCIN HCL [Concomitant]
     Indication: ANTIBIOTIC THERAPY
     Dosage: UNK
     Dates: end: 20090614

REACTIONS (2)
  - DEATH [None]
  - DIARRHOEA [None]
